FAERS Safety Report 20756827 (Version 2)
Quarter: 2022Q2

REPORT INFORMATION
  Report Type: Report from Study
  Country: US (occurrence: US)
  Receive Date: 20220427
  Receipt Date: 20220608
  Transmission Date: 20220721
  Serious: Yes (Other)
  Sender: FDA-Public Use
  Company Number: US-BRISTOL-MYERS SQUIBB COMPANY-2022-025278

PATIENT
  Age: 77 Year
  Sex: Female
  Weight: 98 kg

DRUGS (23)
  1. POMALIDOMIDE [Suspect]
     Active Substance: POMALIDOMIDE
     Indication: Plasma cell myeloma
     Dosage: 1 CAP; FREQ: 21 OUT OF 28 DAYS ORALLY
     Route: 048
     Dates: start: 202203
  2. REVLIMID [Concomitant]
     Active Substance: LENALIDOMIDE
     Indication: Plasma cell myeloma
     Dosage: FREQ: 21 OUT OF 28 DAYS
     Route: 048
     Dates: start: 20140420
  3. DEXAMETHASONE [Concomitant]
     Active Substance: DEXAMETHASONE
  4. ENTRESTO [Concomitant]
     Active Substance: SACUBITRIL\VALSARTAN
  5. ATORVASTATIN CALCIUM [Concomitant]
     Active Substance: ATORVASTATIN CALCIUM
  6. TRIAMCINOLONE ACETONIDE [Concomitant]
     Active Substance: TRIAMCINOLONE ACETONIDE
  7. ASPIRIN [Concomitant]
     Active Substance: ASPIRIN
  8. TYLENOL [Concomitant]
     Active Substance: ACETAMINOPHEN
  9. LEVOTHYROXINE [Concomitant]
     Active Substance: LEVOTHYROXINE
  10. ADVIL (MEFENAMIC ACID) [Concomitant]
     Active Substance: MEFENAMIC ACID
  11. FOLIC ACID [Concomitant]
     Active Substance: FOLIC ACID
  12. STOOL SOFTENER (DOCUSATE) [Concomitant]
     Active Substance: DOCUSATE
  13. PRILOSEC [Concomitant]
     Active Substance: OMEPRAZOLE MAGNESIUM
  14. GABAPENTIN [Concomitant]
     Active Substance: GABAPENTIN
  15. ACYCLOVIR [Concomitant]
     Active Substance: ACYCLOVIR
  16. FAMOTIDINE [Concomitant]
     Active Substance: FAMOTIDINE
  17. DIAZEPAM [Concomitant]
     Active Substance: DIAZEPAM
  18. ERGOCALCIFEROL [Concomitant]
     Active Substance: ERGOCALCIFEROL
  19. POLYVINYL ALCOHOL\POVIDONE [Concomitant]
     Active Substance: POLYVINYL ALCOHOL\POVIDONE
  20. FUROSEMIDE [Concomitant]
     Active Substance: FUROSEMIDE
  21. LOSARTAN POTASSIUM [Concomitant]
     Active Substance: LOSARTAN POTASSIUM
  22. SPIRONOLACTONE [Concomitant]
     Active Substance: SPIRONOLACTONE
  23. DICLOFENAC [Concomitant]
     Active Substance: DICLOFENAC

REACTIONS (7)
  - Hypoaesthesia [Unknown]
  - Paraesthesia [Unknown]
  - Peripheral swelling [Unknown]
  - Somnolence [Unknown]
  - Fatigue [Unknown]
  - Nasopharyngitis [Unknown]
  - Contusion [Unknown]
